FAERS Safety Report 10388114 (Version 2)
Quarter: 2015Q2

REPORT INFORMATION
  Report Type: Spontaneous
  Country: CH (occurrence: CH)
  Receive Date: 20140815
  Receipt Date: 20150430
  Transmission Date: 20150821
  Serious: Yes (Other)
  Sender: FDA-Public Use
  Company Number: CH-ASTRAZENECA-2014SE58347

PATIENT
  Age: 75 Year
  Sex: Male

DRUGS (3)
  1. SYMBICORT [Suspect]
     Active Substance: BUDESONIDE\FORMOTEROL FUMARATE DIHYDRATE
     Dosage: UNKNOWN
     Route: 055
  2. DAFALGAN [Concomitant]
     Active Substance: ACETAMINOPHEN
  3. SYMBICORT [Suspect]
     Active Substance: BUDESONIDE\FORMOTEROL FUMARATE DIHYDRATE
     Dosage: 3 DOSES WITHIN SHORT TIME, UNKNOWN
     Route: 055
     Dates: start: 20140805

REACTIONS (3)
  - Headache [Unknown]
  - Overdose [Unknown]
  - Angle closure glaucoma [Unknown]

NARRATIVE: CASE EVENT DATE: 20140805
